FAERS Safety Report 4290386-3 (Version None)
Quarter: 2004Q1

REPORT INFORMATION
  Report Type: 
  Country: None (occurrence: None)
  Receive Date: 20040206
  Receipt Date: 20040206
  Transmission Date: 20041129
  Serious: No
  Sender: FDA-Public Use
  Company Number: None

PATIENT
  Age: 76 Year
  Sex: Male
  Weight: 113 kg

DRUGS (20)
  1. NATRECOR [Suspect]
     Indication: CARDIAC FAILURE CONGESTIVE
     Dosage: 2 MCG/KG BOLUS INTRAVENOUS
     Route: 040
     Dates: start: 20031121, end: 20031122
  2. NATRECOR [Suspect]
     Dosage: 0.01 MCG/KG MIN INTRAVENOUS
     Route: 042
  3. METHYLPREDNISONE [Concomitant]
  4. DIGOXIN [Concomitant]
  5. BUMETHANIDE [Concomitant]
  6. WARFARIN SODIUM [Concomitant]
  7. MOM [Concomitant]
  8. TEMAZEPAM [Concomitant]
  9. LASIX [Concomitant]
  10. SIMVASTATIN [Concomitant]
  11. METOPROLOL [Concomitant]
  12. FAMOTIDINE [Concomitant]
  13. PERI-COLACE [Concomitant]
  14. FLEETS ENEMA [Concomitant]
  15. ASPIRIN [Concomitant]
  16. OXYCODONE HCL [Concomitant]
  17. LIDOCAINE [Concomitant]
  18. PROMETHAZINE [Concomitant]
  19. CEFEPIME [Concomitant]
  20. VANCOMYCIN [Concomitant]

REACTIONS (1)
  - POLYURIA [None]
